FAERS Safety Report 10712242 (Version 1)
Quarter: 2015Q1

REPORT INFORMATION
  Report Type: Spontaneous
  Country: US (occurrence: US)
  Receive Date: 20150114
  Receipt Date: 20150114
  Transmission Date: 20150721
  Serious: Yes (Death)
  Sender: FDA-Public Use
  Company Number: US-GLAXOSMITHKLINE-US2015GSK004066

PATIENT
  Sex: Female
  Weight: 78.46 kg

DRUGS (1)
  1. TYKERB [Suspect]
     Active Substance: LAPATINIB DITOSYLATE
     Indication: POLYARTHRITIS
     Dosage: 5 DF, QD
     Route: 048
     Dates: start: 20140329

REACTIONS (1)
  - Disease complication [Fatal]
